FAERS Safety Report 8135455-2 (Version None)
Quarter: 2012Q1

REPORT INFORMATION
  Report Type: 
  Country: None (occurrence: None)
  Receive Date: 20120214
  Receipt Date: 20120207
  Transmission Date: 20120608
  Serious: Yes (Other)
  Sender: FDA-Public Use
  Company Number: US-ROCHE-793554

PATIENT
  Sex: Female
  Weight: 48.124 kg

DRUGS (3)
  1. DICYCLOMINE [Concomitant]
  2. ACCUTANE [Suspect]
     Indication: PRODUCT USED FOR UNKNOWN INDICATION
     Route: 065
  3. PROZAC [Concomitant]

REACTIONS (4)
  - COLON CANCER [None]
  - IRRITABLE BOWEL SYNDROME [None]
  - DEPRESSION [None]
  - INFLAMMATORY BOWEL DISEASE [None]
